FAERS Safety Report 7135795-X (Version None)
Quarter: 2010Q4

REPORT INFORMATION
  Report Type: 
  Country: None (occurrence: None)
  Receive Date: 20101203
  Receipt Date: 20101124
  Transmission Date: 20110411
  Serious: Yes (Life-Threatening, Hospitalization)
  Sender: FDA-Public Use
  Company Number: FR-MERCK-1011FRA00097

PATIENT
  Age: 84 Year
  Sex: Male

DRUGS (4)
  1. NOROXIN [Suspect]
     Indication: CYSTITIS
     Route: 048
     Dates: start: 20100101, end: 20100101
  2. PERINDOPRIL [Suspect]
     Indication: HYPERTENSION
     Route: 048
     Dates: end: 20100829
  3. ASPIRIN LYSINE [Concomitant]
     Route: 048
     Dates: end: 20100829
  4. BISOPROLOL FUMARATE [Concomitant]
     Route: 048

REACTIONS (14)
  - ACUTE CORONARY SYNDROME [None]
  - ACUTE PULMONARY OEDEMA [None]
  - AGITATION [None]
  - ANGINA PECTORIS [None]
  - ARTHRALGIA [None]
  - GINGIVAL BLEEDING [None]
  - MENINGORRHAGIA [None]
  - MOTOR DYSFUNCTION [None]
  - NASOPHARYNGITIS [None]
  - PURPURA [None]
  - RENAL FAILURE [None]
  - SUBDURAL HAEMATOMA [None]
  - THROMBOCYTOPENIA [None]
  - VIRAL INFECTION [None]
